FAERS Safety Report 7522436-2 (Version None)
Quarter: 2011Q2

REPORT INFORMATION
  Report Type: 
  Country: None (occurrence: None)
  Receive Date: 20110603
  Receipt Date: 20110601
  Transmission Date: 20111010
  Serious: Yes (Death)
  Sender: FDA-Public Use
  Company Number: US-US-EMD SERONO, INC.-7012505

PATIENT
  Sex: Female

DRUGS (4)
  1. AMPYRA [Concomitant]
  2. PROVIGIL [Concomitant]
     Indication: FATIGUE
  3. REBIF [Suspect]
     Indication: MULTIPLE SCLEROSIS
     Route: 058
     Dates: start: 20100219, end: 20100726
  4. UNSPECIFIED ANTIDEPRESSANT [Concomitant]

REACTIONS (1)
  - MULTIPLE SCLEROSIS [None]
